FAERS Safety Report 6174356-6 (Version None)
Quarter: 2009Q2

REPORT INFORMATION
  Report Type: 
  Country: None (occurrence: None)
  Receive Date: 20090430
  Receipt Date: 20090422
  Transmission Date: 20091009
  Serious: Yes (Other)
  Sender: FDA-Public Use
  Company Number: PHHY2009GB13915

PATIENT
  Sex: Female

DRUGS (2)
  1. ACLASTA [Suspect]
     Indication: OSTEOPOROSIS
     Dosage: UNK
  2. ACLASTA [Suspect]
     Indication: HEPATO-LENTICULAR DEGENERATION

REACTIONS (1)
  - VITAMIN D DEFICIENCY [None]
